FAERS Safety Report 13277370 (Version 1)
Quarter: 2017Q1

REPORT INFORMATION
  Report Type: Spontaneous
  Country: FR (occurrence: FR)
  Receive Date: 20170228
  Receipt Date: 20170228
  Transmission Date: 20170428
  Serious: Yes (Hospitalization, Other)
  Sender: FDA-Public Use
  Company Number: FR-009507513-1702FRA011413

PATIENT
  Age: 57 Year
  Sex: Male

DRUGS (1)
  1. ISENTRESS [Suspect]
     Active Substance: RALTEGRAVIR POTASSIUM
     Dosage: UNK
     Route: 048

REACTIONS (3)
  - Fall [Unknown]
  - Drug dose omission [Unknown]
  - Extravasation blood [Unknown]

NARRATIVE: CASE EVENT DATE: 20170223
